FAERS Safety Report 16292037 (Version 1)
Quarter: 2019Q2

REPORT INFORMATION
  Report Type: Other
  Country: US (occurrence: US)
  Receive Date: 20190509
  Receipt Date: 20190509
  Transmission Date: 20190711
  Serious: Yes (Other)
  Sender: FDA-Public Use
  Company Number: US-ALKERMES INC.-ALK-2018-002536

PATIENT
  Sex: Male
  Weight: 81 kg

DRUGS (1)
  1. VIVITROL [Suspect]
     Active Substance: NALTREXONE
     Indication: ALCOHOLISM
     Dosage: 380 MG, QMO
     Route: 058
     Dates: start: 20161015, end: 20170806

REACTIONS (5)
  - Photosensitivity reaction [Unknown]
  - Sunburn [Unknown]
  - Incorrect route of product administration [Unknown]
  - Anxiety [Unknown]
  - Skin hyperpigmentation [Unknown]

NARRATIVE: CASE EVENT DATE: 20161015
